FAERS Safety Report 6137583-X (Version None)
Quarter: 2009Q1

REPORT INFORMATION
  Report Type: 
  Country: None (occurrence: None)
  Receive Date: 20090327
  Receipt Date: 20090327
  Transmission Date: 20090719
  Serious: Yes (Other)
  Sender: FDA-Public Use
  Company Number: None

PATIENT
  Age: 70 Year
  Sex: Female

DRUGS (1)
  1. CHLORHEXIDINE GLUCONATE SURGILUBE [Suspect]
     Indication: ULTRASOUND SCAN
     Dosage: ULTRA SOUND GEL
     Dates: start: 20090211

REACTIONS (3)
  - BURNING SENSATION [None]
  - DRUG INEFFECTIVE [None]
  - PRURITUS [None]
